FAERS Safety Report 18019155 (Version 2)
Quarter: 2020Q3

REPORT INFORMATION
  Report Type: Report from Study
  Country: US (occurrence: US)
  Receive Date: 20200714
  Receipt Date: 20200727
  Transmission Date: 20201103
  Serious: Yes (Other)
  Sender: FDA-Public Use
  Company Number: US-BEIGENE USA INC-BGN-2020-001155

PATIENT

DRUGS (1)
  1. BRUKINSA [Suspect]
     Active Substance: ZANUBRUTINIB
     Indication: MANTLE CELL LYMPHOMA
     Dosage: 160 MILLIGRAM, BID
     Route: 048
     Dates: start: 20200701

REACTIONS (7)
  - Musculoskeletal disorder [Unknown]
  - Pain [Recovered/Resolved]
  - Influenza [Recovered/Resolved]
  - Muscle spasms [Unknown]
  - Faeces soft [Unknown]
  - Cellulitis [Recovered/Resolved]
  - Peripheral swelling [Recovered/Resolved]
